FAERS Safety Report 5419727-8 (Version None)
Quarter: 2007Q3

REPORT INFORMATION
  Report Type: 
  Country: None (occurrence: None)
  Receive Date: 20070718
  Receipt Date: 20060830
  Transmission Date: 20080115
  Serious: Yes (Hospitalization, Other)
  Sender: FDA-Public Use
  Company Number: 2006107558

PATIENT
  Age: 42 Year
  Sex: Female
  Weight: 120.2032 kg

DRUGS (4)
  1. CELEBREX [Suspect]
     Indication: ARTHRITIS
     Dates: start: 20020101
  2. CELEBREX [Suspect]
     Indication: MUSCLE SPASMS
     Dates: start: 20020101
  3. BEXTRA [Suspect]
     Indication: DYSMENORRHOEA
     Dates: start: 20010101
  4. BEXTRA [Suspect]
     Indication: MUSCLE SPASMS
     Dates: start: 20010101

REACTIONS (3)
  - DEPRESSION [None]
  - MYOCARDIAL INFARCTION [None]
  - STRESS [None]
